FAERS Safety Report 6983351-6 (Version None)
Quarter: 2010Q3

REPORT INFORMATION
  Report Type: 
  Country: None (occurrence: None)
  Receive Date: 20100914
  Receipt Date: 20100914
  Transmission Date: 20110219
  Serious: Yes (Other)
  Sender: FDA-Public Use
  Company Number: None

PATIENT
  Age: 68 Year
  Sex: Female
  Weight: 61.2356 kg

DRUGS (1)
  1. VERSED [Suspect]
     Indication: SEDATIVE THERAPY
     Dosage: 2 MG IV
     Route: 042
     Dates: start: 20100722, end: 20100722

REACTIONS (2)
  - ANAESTHETIC COMPLICATION [None]
  - GASTROINTESTINAL PAIN [None]
